FAERS Safety Report 15124541 (Version 1)
Quarter: 2018Q3

REPORT INFORMATION
  Report Type: Report from Study
  Country: CA (occurrence: CA)
  Receive Date: 20180710
  Receipt Date: 20180710
  Transmission Date: 20181010
  Serious: No
  Sender: FDA-Public Use
  Company Number: CA-SA-2017SA063697

PATIENT
  Age: 55 Year
  Sex: Female

DRUGS (6)
  1. ALEMTUZUMAB [Suspect]
     Active Substance: ALEMTUZUMAB
     Dosage: 12 MG,QD
     Route: 041
     Dates: start: 20170405, end: 20170407
  2. ACICLOVIR [Concomitant]
     Active Substance: ACYCLOVIR
     Indication: PREMEDICATION
     Dosage: 200 MG,BID
     Route: 048
     Dates: start: 20170405
  3. REACTINE [CETIRIZINE HYDROCHLORIDE] [Concomitant]
     Active Substance: CETIRIZINE HYDROCHLORIDE
     Indication: PREMEDICATION
     Dosage: 10 MG,UNK
     Route: 048
     Dates: start: 20170405, end: 20170407
  4. RANITIDINE. [Concomitant]
     Active Substance: RANITIDINE
     Indication: PREMEDICATION
     Dosage: 150 MG,UNK
     Route: 048
     Dates: start: 20170405, end: 20170407
  5. METHYLPREDNISOLONE. [Concomitant]
     Active Substance: METHYLPREDNISOLONE
     Indication: PREMEDICATION
     Dosage: 1 G,UNK
     Route: 042
     Dates: start: 20170405, end: 20170407
  6. ACETAMINOPHEN. [Concomitant]
     Active Substance: ACETAMINOPHEN
     Indication: HEADACHE
     Dosage: 1 G,PRN
     Route: 048
     Dates: start: 20170405

REACTIONS (23)
  - Blood pressure increased [Recovered/Resolved]
  - Monocyte percentage increased [Recovered/Resolved]
  - Lymphocyte percentage decreased [Not Recovered/Not Resolved]
  - Urticaria [Recovered/Resolved]
  - Culture urine positive [Unknown]
  - Hot flush [Recovered/Resolved]
  - Bilirubin urine [Recovered/Resolved]
  - Urine analysis abnormal [Not Recovered/Not Resolved]
  - Heart rate increased [Recovered/Resolved]
  - Red blood cells urine positive [Recovered/Resolved]
  - Nausea [Recovered/Resolved]
  - Headache [Recovered/Resolved]
  - Fatigue [Recovered/Resolved]
  - Lymphocyte count decreased [Not Recovered/Not Resolved]
  - Blood thyroid stimulating hormone increased [Recovered/Resolved]
  - Sinus tachycardia [Recovered/Resolved]
  - White blood cells urine positive [Recovered/Resolved]
  - Haemoglobin increased [Recovered/Resolved]
  - Hyperhidrosis [Recovered/Resolved]
  - Neutrophil percentage increased [Recovered/Resolved]
  - Urine leukocyte esterase positive [Recovered/Resolved]
  - Crystal urine present [Not Recovered/Not Resolved]
  - Blood urine present [Recovered/Resolved]

NARRATIVE: CASE EVENT DATE: 20170405
